FAERS Safety Report 22541982 (Version 1)
Quarter: 2023Q2

REPORT INFORMATION
  Report Type: Spontaneous
  Country: CN (occurrence: CN)
  Receive Date: 20230609
  Receipt Date: 20230609
  Transmission Date: 20230722
  Serious: No
  Sender: FDA-Public Use
  Company Number: CN-ELI_LILLY_AND_COMPANY-CN202306004843

PATIENT
  Age: 57 Year
  Sex: Male

DRUGS (3)
  1. ZYPREXA [Suspect]
     Active Substance: OLANZAPINE
     Indication: Psychotic symptom
     Dosage: 12.5 MG, DAILY
     Route: 048
     Dates: start: 20230103, end: 20230530
  2. VALPROATE SODIUM [Concomitant]
     Active Substance: VALPROATE SODIUM
     Indication: Affect lability
     Dosage: 0.25 G, BID
     Route: 048
     Dates: start: 20220722, end: 20230530
  3. VALPROIC ACID [Concomitant]
     Active Substance: VALPROIC ACID
     Indication: Affect lability
     Dosage: 0.25 G, BID
     Route: 048
     Dates: start: 20220722, end: 20230530

REACTIONS (1)
  - Leukopenia [Unknown]

NARRATIVE: CASE EVENT DATE: 20230518
